FAERS Safety Report 19869840 (Version 1)
Quarter: 2021Q3

REPORT INFORMATION
  Report Type: Spontaneous
  Country: CA (occurrence: CA)
  Receive Date: 20210922
  Receipt Date: 20210922
  Transmission Date: 20211014
  Serious: Yes (Other)
  Sender: FDA-Public Use
  Company Number: CA-TEVA-2021-CA-1954902

PATIENT
  Age: 72 Year
  Sex: Female
  Weight: 54 kg

DRUGS (7)
  1. TEGSEDI [Suspect]
     Active Substance: INOTERSEN SODIUM
     Route: 058
  2. PREDNISONE. [Suspect]
     Active Substance: PREDNISONE
     Dosage: 70 MILLIGRAM DAILY;
     Route: 065
  3. GOLDEN EYE OINTMENT [Concomitant]
  4. LEVOTHYROXINE. [Concomitant]
     Active Substance: LEVOTHYROXINE
  5. TEGSEDI [Suspect]
     Active Substance: INOTERSEN SODIUM
     Indication: HEREDITARY NEUROPATHIC AMYLOIDOSIS
     Route: 058
  6. PREDNISONE. [Suspect]
     Active Substance: PREDNISONE
     Indication: FACIAL PARALYSIS
     Dosage: 50 MILLIGRAM DAILY;
     Route: 065
  7. TEVA?FUROSEMIDE [Concomitant]
     Active Substance: FUROSEMIDE

REACTIONS (34)
  - Vitamin A decreased [Unknown]
  - Injection site pain [Unknown]
  - Dry mouth [Unknown]
  - Visual impairment [Unknown]
  - Rash [Unknown]
  - Trichorrhexis [Unknown]
  - Water pollution [Unknown]
  - Basophil count increased [Unknown]
  - Haematocrit increased [Unknown]
  - Dry eye [Unknown]
  - Injection site rash [Unknown]
  - Creatinine urine decreased [Unknown]
  - Headache [Unknown]
  - Pain in extremity [Unknown]
  - Swelling face [Unknown]
  - Abnormal sensation in eye [Unknown]
  - Asthenopia [Unknown]
  - Blood pressure increased [Unknown]
  - Fatigue [Unknown]
  - Injection site erythema [Unknown]
  - Oropharyngeal pain [Unknown]
  - Back pain [Unknown]
  - Haemoglobin increased [Unknown]
  - Urine protein/creatinine ratio increased [Unknown]
  - Facial paralysis [Unknown]
  - Limb operation [Unknown]
  - Night sweats [Unknown]
  - Glomerular filtration rate decreased [Unknown]
  - Monocyte count decreased [Unknown]
  - Platelet count decreased [Unknown]
  - Constipation [Unknown]
  - Dysphonia [Unknown]
  - Pollakiuria [Unknown]
  - Poor venous access [Unknown]
